FAERS Safety Report 12139642 (Version 2)
Quarter: 2016Q1

REPORT INFORMATION
  Report Type: Spontaneous
  Country: US (occurrence: US)
  Receive Date: 20160303
  Receipt Date: 20160307
  Transmission Date: 20160526
  Serious: Yes (Other)
  Sender: FDA-Public Use
  Company Number: US-DRREDDYS-USA/USA/16/0076640

PATIENT
  Sex: Male

DRUGS (1)
  1. ZENATANE [Suspect]
     Active Substance: ISOTRETINOIN
     Indication: ACNE
     Route: 065
     Dates: start: 20151105

REACTIONS (6)
  - Epistaxis [Recovered/Resolved]
  - Aggression [Unknown]
  - Dry skin [Recovered/Resolved]
  - Lip dry [Recovered/Resolved]
  - Headache [Recovered/Resolved]
  - Back pain [Unknown]
